FAERS Safety Report 8887034 (Version 1)
Quarter: 2012Q4

REPORT INFORMATION
  Report Type: 
  Country: FR (occurrence: FR)
  Receive Date: 20121105
  Receipt Date: 20121105
  Transmission Date: 20130627
  Serious: Yes (Other)
  Sender: FDA-Public Use
  Company Number: FR-ABBOTT-12P-056-1003760-00

PATIENT
  Age: 22 Year
  Sex: Male

DRUGS (3)
  1. DEPAKOTE [Suspect]
     Indication: PRODUCT USED FOR UNKNOWN INDICATION
     Route: 048
     Dates: start: 201112
  2. CILASTATIN SODIUM\IMIPENEM [Interacting]
     Indication: URINARY TRACT INFECTION
     Route: 048
     Dates: start: 20120809, end: 20120816
  3. MERONEM [Interacting]
     Indication: URINARY TRACT INFECTION
     Route: 042
     Dates: start: 20120817, end: 20120820

REACTIONS (2)
  - Convulsion [Recovered/Resolved]
  - Drug interaction [Unknown]
